FAERS Safety Report 16094644 (Version 5)
Quarter: 2021Q1

REPORT INFORMATION
  Report Type: Other
  Country: US (occurrence: US)
  Receive Date: 20190320
  Receipt Date: 20210123
  Transmission Date: 20210419
  Serious: Yes (Other)
  Sender: FDA-Public Use
  Company Number: US-ROCHE-2280733

PATIENT
  Age: 43 Year
  Sex: Female
  Weight: 62.2 kg

DRUGS (2)
  1. PROVENTIL [Concomitant]
     Active Substance: ALBUTEROL
     Indication: ASTHMA
     Dosage: PRN ;ONGOING: YES
     Route: 055
     Dates: start: 1992
  2. OCREVUS [Suspect]
     Active Substance: OCRELIZUMAB
     Indication: RELAPSING-REMITTING MULTIPLE SCLEROSIS
     Dosage: SUBSEQUENT DOSES OF OCRELIZUMAB: 18/APR/2018, 19/OCT/2018, 24/APR/2019, 19/NOV/2019, 18/JUN/2020, 05
     Route: 042
     Dates: start: 20171016

REACTIONS (6)
  - Breast tenderness [Recovered/Resolved]
  - Oral herpes [Recovered/Resolved with Sequelae]
  - Depression [Recovered/Resolved]
  - Suicidal ideation [Recovered/Resolved]
  - Menstrual disorder [Unknown]
  - Polymenorrhoea [Not Recovered/Not Resolved]

NARRATIVE: CASE EVENT DATE: 201810
